FAERS Safety Report 7081056-7 (Version None)
Quarter: 2010Q4

REPORT INFORMATION
  Report Type: 
  Country: None (occurrence: None)
  Receive Date: 20101103
  Receipt Date: 20101025
  Transmission Date: 20110411
  Serious: Yes (Hospitalization)
  Sender: FDA-Public Use
  Company Number: B0682335A

PATIENT
  Sex: Female

DRUGS (7)
  1. ALLI [Suspect]
     Dosage: 3CAP PER DAY
     Route: 065
     Dates: start: 20100601, end: 20100901
  2. PROZAC [Concomitant]
     Indication: DEPRESSION
     Dosage: 3U PER DAY
     Dates: start: 20070101
  3. RIVOTRIL [Concomitant]
     Dosage: 6DROP PER DAY
     Dates: start: 20070101
  4. EUTHYRAL [Concomitant]
     Route: 048
     Dates: start: 20100401
  5. PIASCLEDINE [Concomitant]
     Dosage: 1CAP PER DAY
  6. DEBRIDAT [Concomitant]
     Dosage: 200MG PER DAY
     Dates: start: 20091101
  7. FORLAX [Concomitant]

REACTIONS (5)
  - ANORECTAL DISCOMFORT [None]
  - ECZEMA [None]
  - OEDEMA [None]
  - PRURIGO [None]
  - RASH [None]
